FAERS Safety Report 4273133-0 (Version None)
Quarter: 2004Q1

REPORT INFORMATION
  Report Type: 
  Country: None (occurrence: None)
  Receive Date: 20040116
  Receipt Date: 20031203
  Transmission Date: 20041129
  Serious: Yes (Hospitalization)
  Sender: FDA-Public Use
  Company Number: JP-GLAXOSMITHKLINE-B0316970A

PATIENT
  Age: 66 Year
  Sex: Female
  Weight: 46 kg

DRUGS (13)
  1. VALTREX [Suspect]
     Indication: HERPES ZOSTER
     Dosage: 3000MG PER DAY
     Route: 048
     Dates: start: 20031119
  2. VIDARABINE [Suspect]
     Indication: HERPES ZOSTER
     Route: 042
     Dates: start: 20031119
  3. TICLOPIDINE HYDROCHLORIDE [Suspect]
     Indication: CEREBRAL INFARCTION
     Dosage: 100MG PER DAY
     Route: 048
  4. PRAVASTATIN SODIUM [Concomitant]
     Indication: HYPERLIPIDAEMIA
     Dosage: 10MG PER DAY
     Route: 048
  5. GLICLAZIDE [Concomitant]
     Indication: DIABETES MELLITUS
     Dosage: 40MG PER DAY
     Route: 048
  6. METFORMIN HCL [Concomitant]
     Indication: DIABETES MELLITUS
     Dosage: 500MG PER DAY
     Route: 048
  7. LOXOPROFEN SODIUM [Concomitant]
     Route: 048
  8. GLIMEPIRIDE [Concomitant]
     Indication: DIABETES MELLITUS
     Dosage: 3MG PER DAY
     Route: 048
  9. ASPIRIN [Concomitant]
     Indication: CEREBRAL INFARCTION
     Dosage: 100MG PER DAY
     Route: 048
  10. MOSAPRIDE CITRATE [Concomitant]
     Dosage: 15MG PER DAY
     Route: 048
  11. ETIZOLAM [Concomitant]
     Dosage: 1MG PER DAY
     Route: 048
  12. DIFENIDOL HYDROCHLORIDE [Concomitant]
     Indication: VERTIGO
     Dosage: 75MG PER DAY
     Route: 048
  13. ADENOSINE TRIPHOSPHATE DISODIUM [Concomitant]
     Dosage: 3G PER DAY
     Route: 048

REACTIONS (11)
  - ALANINE AMINOTRANSFERASE INCREASED [None]
  - ASPARTATE AMINOTRANSFERASE INCREASED [None]
  - BLOOD LACTATE DEHYDROGENASE INCREASED [None]
  - CELLULITIS ORBITAL [None]
  - DEPRESSED LEVEL OF CONSCIOUSNESS [None]
  - DYSLALIA [None]
  - HAEMODIALYSIS [None]
  - HEPATIC FUNCTION ABNORMAL [None]
  - PYREXIA [None]
  - RENAL FAILURE ACUTE [None]
  - THROMBOCYTOPENIA [None]
